FAERS Safety Report 7740445-5 (Version None)
Quarter: 2011Q3

REPORT INFORMATION
  Report Type: 
  Country: None (occurrence: None)
  Receive Date: 20110909
  Receipt Date: 20110830
  Transmission Date: 20111222
  Serious: Yes (Hospitalization, Other)
  Sender: FDA-Public Use
  Company Number: US-BAYER-201036905NA

PATIENT
  Age: 23 Year
  Sex: Female
  Weight: 130.16 kg

DRUGS (11)
  1. YASMIN [Suspect]
     Indication: CONTRACEPTION
     Dosage: UNK
     Dates: start: 20050101, end: 20060101
  2. NYSTATIN [Concomitant]
     Dosage: UNK
     Route: 061
     Dates: start: 20080425
  3. PRENATAL PLUS IRON [Concomitant]
     Dosage: 27 MG, UNK
     Route: 048
     Dates: start: 20070904
  4. LORTAB [Concomitant]
     Dosage: 5 MG, QID
     Route: 048
     Dates: start: 20080418
  5. PERCOCET [Concomitant]
     Dosage: 5.325 MG, UNK
     Route: 048
  6. PUPPS [Concomitant]
     Dosage: UNK
     Route: 061
     Dates: start: 20080118
  7. LEVOXYL [Concomitant]
     Dosage: 0.075 MCG/24HR, UNK
     Route: 048
  8. KEFLEX [Concomitant]
     Dosage: 500 MG, UNK
     Route: 048
     Dates: start: 20080425
  9. FERROUS SULFATE TAB [Concomitant]
     Dosage: 325 MG, UNK
     Route: 048
     Dates: start: 20071030
  10. LIDODERM [Concomitant]
     Dosage: UNK
     Route: 061
     Dates: start: 20080429
  11. YASMIN [Suspect]
     Dosage: UNK
     Dates: start: 20080501, end: 20080601

REACTIONS (7)
  - MENTAL DISORDER [None]
  - PULMONARY EMBOLISM [None]
  - PNEUMOTHORAX [None]
  - PNEUMONIA [None]
  - MUSCULOSKELETAL PAIN [None]
  - CHEST PAIN [None]
  - THROMBOSIS [None]
